FAERS Safety Report 20073556 (Version 4)
Quarter: 2021Q4

REPORT INFORMATION
  Report Type: Spontaneous
  Country: NZ (occurrence: NZ)
  Receive Date: 20211116
  Receipt Date: 20211223
  Transmission Date: 20220303
  Serious: Yes (Death, Hospitalization)
  Sender: FDA-Public Use
  Company Number: NZ-MYLANLABS-2021M1083670

PATIENT
  Age: 63 Year
  Sex: Male

DRUGS (4)
  1. CLOZARIL [Suspect]
     Active Substance: CLOZAPINE
     Indication: Schizophrenia
     Dosage: UNK
     Route: 048
     Dates: start: 19970109
  2. CLOZARIL [Suspect]
     Active Substance: CLOZAPINE
     Dosage: UNK (100MG BD, 250MG NOCTE)
     Route: 048
     Dates: start: 2002, end: 20211014
  3. DOCUSATE SODIUM\SENNOSIDES A AND B [Concomitant]
     Active Substance: DOCUSATE SODIUM\SENNOSIDES A AND B
     Indication: Constipation
     Dosage: UNK, PRN DAILY
     Route: 048
     Dates: start: 2018, end: 202110
  4. VITAMIN D NOS [Concomitant]
     Active Substance: VITAMIN D NOS
     Indication: Vitamin D deficiency
     Dosage: 1.25 MILLIGRAM, MONTHLY
     Route: 048
     Dates: end: 202110

REACTIONS (1)
  - Colorectal cancer metastatic [Fatal]

NARRATIVE: CASE EVENT DATE: 20210901
